FAERS Safety Report 4867648-1 (Version None)
Quarter: 2005Q4

REPORT INFORMATION
  Report Type: 
  Country: None (occurrence: None)
  Receive Date: 20051222
  Receipt Date: 20051212
  Transmission Date: 20060501
  Serious: Yes (Death)
  Sender: FDA-Public Use
  Company Number: 2005S1011020

PATIENT
  Age: 52 Year
  Sex: Male
  Weight: 149.687 kg

DRUGS (22)
  1. FENTANYL [Suspect]
     Indication: BACK PAIN
     Dosage: 75 MCG/HR; Q3D; TRANS
     Route: 062
     Dates: start: 20050201
  2. FENTANYL [Suspect]
     Indication: SURGERY
     Dosage: 75 MCG/HR; Q3D; TRANS
     Route: 062
     Dates: start: 20050201
  3. IBUPROFEN [Concomitant]
  4. FLUOXETINE [Concomitant]
  5. HYDROCHLORIDE [Concomitant]
  6. ALLOPURINOL [Concomitant]
  7. LORATADINE [Concomitant]
  8. CYCLOBENZAPRINE HCL [Concomitant]
  9. DOXYCYCLINE [Concomitant]
  10. FOLIC ACID [Concomitant]
  11. WARFARIN [Concomitant]
  12. ROSIGLITAZONE MALEATE [Concomitant]
  13. DILTIAZEM HYDROCHLORIDE [Concomitant]
  14. ISOSORBIDE [Concomitant]
  15. METOPROLOL [Concomitant]
  16. SIMVASTATIN [Concomitant]
  17. PRAVASTATIN SODIUM [Concomitant]
  18. ALPRAZOLAM [Concomitant]
  19. MONTELUKAST SODIUM [Concomitant]
  20. IPRATROPIUM BROMIDE/SALBUTAMOL SULFATE [Concomitant]
  21. FLUTICASONE PROPIONATE [Concomitant]
  22. GEMFIBROZIL [Concomitant]

REACTIONS (2)
  - PAIN [None]
  - PHARMACEUTICAL PRODUCT COMPLAINT [None]
